FAERS Safety Report 15645818 (Version 1)
Quarter: 2018Q4

REPORT INFORMATION
  Report Type: Spontaneous
  Country: HK (occurrence: HK)
  Receive Date: 20181121
  Receipt Date: 20181121
  Transmission Date: 20190205
  Serious: Yes (Other)
  Sender: FDA-Public Use
  Company Number: HK-ALLERGAN-1854362US

PATIENT
  Age: 40 Year
  Sex: Female

DRUGS (1)
  1. NORETHINDRONE UNK [Suspect]
     Active Substance: NORETHINDRONE ACETATE
     Indication: POLYCYSTIC OVARIES
     Dosage: UNK
     Route: 065

REACTIONS (8)
  - Off label use [Unknown]
  - Haemoglobin decreased [Unknown]
  - Mesenteric vein thrombosis [Recovered/Resolved]
  - Ischaemia [Unknown]
  - Oedema [Unknown]
  - Shock haemorrhagic [Unknown]
  - Hepatic haematoma [Recovering/Resolving]
  - Tachycardia [Unknown]
